FAERS Safety Report 6830534-1 (Version None)
Quarter: 2010Q3

REPORT INFORMATION
  Report Type: 
  Country: None (occurrence: None)
  Receive Date: 20100712
  Receipt Date: 20100628
  Transmission Date: 20110219
  Serious: Yes (Death, Hospitalization)
  Sender: FDA-Public Use
  Company Number: US-RANBAXY-2010US-35317

PATIENT

DRUGS (25)
  1. VERAPAMIL [Suspect]
     Indication: HYPERTENSION
     Dosage: UNK, UNK
     Route: 065
  2. METFORMIN HYDROCHLORIDE [Suspect]
     Indication: TYPE 2 DIABETES MELLITUS
     Dosage: UNK UNK,
     Route: 048
  3. AMITRIPTYLINE HYDROCHLORIDE [Suspect]
     Indication: DEPRESSION
     Route: 065
  4. CIPROFLOXACIN [Suspect]
     Indication: BACTERAEMIA
     Route: 065
  5. ENALAPRIL MALEATE [Suspect]
     Indication: HYPERTENSION
     Route: 065
  6. ASPIRIN [Suspect]
     Indication: MYOCARDIAL ISCHAEMIA
     Dosage: UNK MG, UNK
     Route: 065
  7. ASPIRIN [Suspect]
     Indication: HYPERTENSION
  8. SIMVASTATIN [Suspect]
     Indication: HYPERLIPIDAEMIA
     Route: 065
  9. FUROSEMIDE [Suspect]
     Indication: HYPERTENSION
     Route: 065
  10. OMEPRAZOLE [Suspect]
     Indication: PRODUCT USED FOR UNKNOWN INDICATION
     Route: 065
  11. VANCOMYCIN [Suspect]
     Indication: BACTERAEMIA
     Route: 065
  12. LEVOFLOXACIN [Suspect]
     Indication: BACTERAEMIA
     Route: 065
  13. AMPICILLIN/SULBACTUM [Suspect]
     Indication: BACTERAEMIA
     Route: 065
  14. CEFTRIAXONE [Suspect]
     Indication: PNEUMONIA
     Route: 065
  15. GLIBENCLAMIDE [Suspect]
     Indication: TYPE 2 DIABETES MELLITUS
     Route: 048
  16. CITROPRAM [Suspect]
     Indication: DEPRESSION
     Route: 065
  17. THEOPHYLLINE [Suspect]
     Indication: BRONCHITIS CHRONIC
     Route: 065
  18. PIPERACILLIN AND TAZOBACTAM [Suspect]
     Indication: BACTERAEMIA
     Route: 065
  19. AMIKACIN [Suspect]
     Indication: BACTERAEMIA
     Route: 065
  20. HYDROCORTISONE [Suspect]
     Indication: TOXIC EPIDERMAL NECROLYSIS
     Dosage: 500 MG
     Route: 042
  21. IMMUNE GLOBULIN NOS [Suspect]
     Indication: PRODUCT USED FOR UNKNOWN INDICATION
     Dosage: 40 MG, QD
     Route: 042
  22. DEXTROSE [Concomitant]
     Indication: HYPOGLYCAEMIA
     Route: 042
  23. MAGNESIUM SULFATE [Concomitant]
     Indication: HYPOMAGNESAEMIA
     Route: 065
  24. LATANOPROST [Concomitant]
     Indication: PRODUCT USED FOR UNKNOWN INDICATION
     Route: 047
  25. DORZOLAMIDE [Concomitant]
     Indication: PRODUCT USED FOR UNKNOWN INDICATION
     Route: 047

REACTIONS (5)
  - ACUTE RESPIRATORY DISTRESS SYNDROME [None]
  - BACTERIAL INFECTION [None]
  - HAEMORRHAGE INTRACRANIAL [None]
  - HYPOGLYCAEMIA [None]
  - TOXIC EPIDERMAL NECROLYSIS [None]
